FAERS Safety Report 13080046 (Version 1)
Quarter: 2017Q1

REPORT INFORMATION
  Report Type: Spontaneous
  Country: CA (occurrence: CA)
  Receive Date: 20170103
  Receipt Date: 20170103
  Transmission Date: 20170428
  Serious: Yes (Other)
  Sender: FDA-Public Use
  Company Number: CA-JNJFOC-20161222468

PATIENT
  Sex: Male

DRUGS (2)
  1. TYLENOL COLD AND FLU DAYTIME (CANADA- ACETAMINOPHEN\DEXTROMETHORPH\PHENYLEPH) [Suspect]
     Active Substance: ACETAMINOPHEN\DEXTROMETHORPHAN HYDROBROMIDE\PHENYLEPHRINE HYDROCHLORIDE
     Indication: PRODUCT USED FOR UNKNOWN INDICATION
     Route: 048
  2. TYLENOL COLD AND FLU NIGHTTIME (CANADA- ACETAMINOPHEN\DEXTROMETHORPH\DOXYLAMIN\PHENYLEPH) [Suspect]
     Active Substance: ACETAMINOPHEN\DEXTROMETHORPHAN\DOXYLAMINE\PHENYLEPHRINE\SODIUM BICARBONATE
     Indication: PRODUCT USED FOR UNKNOWN INDICATION
     Route: 048

REACTIONS (1)
  - Atrial fibrillation [Unknown]
